FAERS Safety Report 21483111 (Version 2)
Quarter: 2023Q1

REPORT INFORMATION
  Report Type: Report from Study
  Country: CO (occurrence: CO)
  Receive Date: 20221020
  Receipt Date: 20230111
  Transmission Date: 20230417
  Serious: Yes (Hospitalization, Other)
  Sender: FDA-Public Use
  Company Number: CO-JNJFOC-20220914017

PATIENT
  Age: 55 Year
  Sex: Female
  Weight: 72 kg

DRUGS (5)
  1. SIMPONI [Suspect]
     Active Substance: GOLIMUMAB
     Indication: Rheumatoid arthritis
     Route: 058
     Dates: start: 202001, end: 20221205
  2. LEFLUNOMIDE [Suspect]
     Active Substance: LEFLUNOMIDE
  3. LOSARTAN [Concomitant]
     Active Substance: LOSARTAN
  4. LINAGLIPTIN [Concomitant]
     Active Substance: LINAGLIPTIN
  5. VASELINA [Concomitant]

REACTIONS (7)
  - Thyroid cancer [Recovering/Resolving]
  - Gallbladder disorder [Recovering/Resolving]
  - Joint swelling [Recovering/Resolving]
  - Dermatitis [Not Recovered/Not Resolved]
  - Abdominal pain upper [Not Recovered/Not Resolved]
  - Diarrhoea [Not Recovered/Not Resolved]
  - Tooth extraction [Not Recovered/Not Resolved]

NARRATIVE: CASE EVENT DATE: 20220807
